FAERS Safety Report 15508307 (Version 4)
Quarter: 2018Q4

REPORT INFORMATION
  Report Type: Spontaneous
  Country: GB (occurrence: GB)
  Receive Date: 20181016
  Receipt Date: 20181031
  Transmission Date: 20190205
  Serious: Yes (Other)
  Sender: FDA-Public Use
  Company Number: GB-PFIZER INC-2018416251

PATIENT
  Age: 41 Year
  Sex: Male

DRUGS (1)
  1. IBUPROFEN. [Suspect]
     Active Substance: IBUPROFEN
     Indication: TOOTHACHE
     Dosage: 200 MG, SINGLE
     Route: 048
     Dates: start: 20180915, end: 20180915

REACTIONS (14)
  - Vomiting [Recovering/Resolving]
  - Cardiac discomfort [Recovered/Resolved]
  - Decreased appetite [Recovered/Resolved]
  - Dyspnoea [Recovering/Resolving]
  - Malaise [Recovered/Resolved]
  - Chest pain [Recovered/Resolved]
  - Nervousness [Recovering/Resolving]
  - Bedridden [Recovered/Resolved]
  - Abdominal pain [Recovering/Resolving]
  - Hyperhidrosis [Recovered/Resolved]
  - Chest discomfort [Recovered/Resolved]
  - Abdominal pain upper [Recovered/Resolved]
  - Drug hypersensitivity [Recovering/Resolving]
  - Oligodipsia [Recovered/Resolved]

NARRATIVE: CASE EVENT DATE: 20180915
